FAERS Safety Report 23506893 (Version 1)
Quarter: 2024Q1

REPORT INFORMATION
  Report Type: Spontaneous
  Country: JP (occurrence: JP)
  Receive Date: 20240209
  Receipt Date: 20240209
  Transmission Date: 20240410
  Serious: Yes (Other)
  Sender: FDA-Public Use
  Company Number: JP-TRIS PHARMA, INC.-24JP011327

PATIENT

DRUGS (8)
  1. RISPERIDONE [Suspect]
     Active Substance: RISPERIDONE
     Indication: Epilepsy
     Dosage: 2 MILLIGRAM, QD
  2. RISPERIDONE [Suspect]
     Active Substance: RISPERIDONE
     Indication: Antipsychotic therapy
  3. VALPROIC ACID [Suspect]
     Active Substance: VALPROIC ACID
     Indication: Epilepsy
     Dosage: 1600 MILLIGRAM, QD
  4. VALPROIC ACID [Suspect]
     Active Substance: VALPROIC ACID
     Indication: Antipsychotic therapy
  5. QUETIAPINE [Suspect]
     Active Substance: QUETIAPINE
     Indication: Epilepsy
     Dosage: 225 MILLIGRAM, QD
  6. QUETIAPINE [Suspect]
     Active Substance: QUETIAPINE
     Indication: Antipsychotic therapy
  7. ETIZOLAM [Suspect]
     Active Substance: ETIZOLAM
     Indication: Epilepsy
     Dosage: UNK
  8. ETIZOLAM [Suspect]
     Active Substance: ETIZOLAM
     Indication: Antipsychotic therapy

REACTIONS (2)
  - Central hypothyroidism [Unknown]
  - Hyperprolactinaemia [Unknown]
